FAERS Safety Report 13081281 (Version 4)
Quarter: 2018Q1

REPORT INFORMATION
  Report Type: Report from Study
  Country: None (occurrence: BR)
  Receive Date: 20170103
  Receipt Date: 20180205
  Transmission Date: 20180508
  Serious: Yes (Hospitalization, Other)
  Sender: FDA-Public Use
  Company Number: BR-ABBVIE-16K-020-1824545-00

PATIENT
  Age: 39 Year
  Sex: Male
  Weight: 65 kg

DRUGS (6)
  1. AZATHIOPRINE. [Concomitant]
     Active Substance: AZATHIOPRINE
     Indication: IMMUNODEFICIENCY
     Route: 048
     Dates: start: 2005
  2. AZATHIOPRINE. [Concomitant]
     Active Substance: AZATHIOPRINE
     Indication: CROHN^S DISEASE
  3. HUMIRA [Suspect]
     Active Substance: ADALIMUMAB
     Indication: CROHN^S DISEASE
     Dosage: LOADING DOSE
     Route: 058
     Dates: start: 20161206, end: 20161206
  4. HUMIRA [Suspect]
     Active Substance: ADALIMUMAB
     Dosage: WEEK 1
     Route: 058
     Dates: start: 20161221, end: 20161221
  5. HUMIRA [Suspect]
     Active Substance: ADALIMUMAB
     Route: 058
     Dates: end: 20171229
  6. AZATHIOPRINE. [Concomitant]
     Active Substance: AZATHIOPRINE
     Indication: OSTEOPOROSIS

REACTIONS (15)
  - Appendicitis [Unknown]
  - Pleural effusion [Not Recovered/Not Resolved]
  - Purulent discharge [Unknown]
  - Ileostomy [Unknown]
  - Painful respiration [Not Recovered/Not Resolved]
  - Gastrointestinal bacterial overgrowth [Unknown]
  - Gastrointestinal inflammation [Recovering/Resolving]
  - Intra-abdominal fluid collection [Unknown]
  - Ascites [Unknown]
  - Intra-abdominal fluid collection [Unknown]
  - Weight decreased [Recovered/Resolved]
  - Enterovesical fistula [Recovered/Resolved]
  - Suture rupture [Unknown]
  - Ureteric dilatation [Unknown]
  - Post procedural complication [Unknown]

NARRATIVE: CASE EVENT DATE: 201612
